FAERS Safety Report 19549767 (Version 1)
Quarter: 2021Q3

REPORT INFORMATION
  Report Type: Spontaneous
  Country: US (occurrence: US)
  Receive Date: 20210715
  Receipt Date: 20210715
  Transmission Date: 20211014
  Serious: No
  Sender: FDA-Public Use
  Company Number: US-NOVAST LABORATORIES INC.-2020NOV000339

PATIENT
  Age: 25 Year
  Sex: Female

DRUGS (1)
  1. MONO?LINYAH [Suspect]
     Active Substance: ETHINYL ESTRADIOL\NORGESTIMATE
     Indication: ORAL CONTRACEPTION
     Dosage: UNK
     Dates: start: 2018, end: 202008

REACTIONS (1)
  - Menstruation delayed [Unknown]
